FAERS Safety Report 9906578 (Version 1)
Quarter: 2014Q1

REPORT INFORMATION
  Report Type: Spontaneous
  Country: GB (occurrence: GB)
  Receive Date: 20140218
  Receipt Date: 20140218
  Transmission Date: 20141002
  Serious: Yes (Other)
  Sender: FDA-Public Use
  Company Number: GB-ACTAVIS-2014-02408

PATIENT
  Age: 53 Year
  Sex: Female
  Weight: 107 kg

DRUGS (12)
  1. HYDROCORTISONE (UNKNOWN) [Suspect]
     Indication: PRODUCT USED FOR UNKNOWN INDICATION
     Dosage: UNK
     Route: 065
     Dates: start: 20140124
  2. TIXOCORTOL PIVALATE [Suspect]
     Indication: PRODUCT USED FOR UNKNOWN INDICATION
     Dosage: UNK
     Route: 065
  3. SALBUTAMOL [Concomitant]
     Indication: PRODUCT USED FOR UNKNOWN INDICATION
     Dosage: UNK
     Route: 065
     Dates: start: 20131223, end: 20140120
  4. SALBUTAMOL [Concomitant]
     Dosage: UNK
     Route: 065
     Dates: start: 20130930, end: 20131028
  5. AMITRIPTYLINE HYDROCHLORIDE [Concomitant]
     Indication: PRODUCT USED FOR UNKNOWN INDICATION
     Dosage: UNK
     Route: 065
     Dates: start: 20131008
  6. CO-CODAMOL [Concomitant]
     Indication: PRODUCT USED FOR UNKNOWN INDICATION
     Dosage: UNK
     Route: 065
     Dates: start: 20131024
  7. DICLOFENAC SODIUM [Concomitant]
     Indication: PRODUCT USED FOR UNKNOWN INDICATION
     Dosage: UNK
     Route: 065
     Dates: start: 20140106, end: 20140107
  8. DICLOFENAC SODIUM [Concomitant]
     Dosage: UNK
     Route: 065
     Dates: start: 20131209, end: 20131210
  9. DICLOFENAC SODIUM [Concomitant]
     Dosage: UNK
     Route: 065
     Dates: start: 20131024, end: 20131025
  10. QUININE [Concomitant]
     Indication: PRODUCT USED FOR UNKNOWN INDICATION
     Dosage: UNK
     Route: 065
     Dates: start: 20140106, end: 20140107
  11. QUININE [Concomitant]
     Dosage: UNK
     Route: 065
     Dates: start: 20131204, end: 20131205
  12. CLENIL MODULITE [Concomitant]
     Indication: PRODUCT USED FOR UNKNOWN INDICATION
     Dosage: UNK
     Route: 065
     Dates: start: 20131206, end: 20140103

REACTIONS (2)
  - Rash [Recovered/Resolved]
  - Drug hypersensitivity [Unknown]
